FAERS Safety Report 10306806 (Version 1)
Quarter: 2014Q3

REPORT INFORMATION
  Report Type: Spontaneous
  Country: US (occurrence: US)
  Receive Date: 20140715
  Receipt Date: 20140715
  Transmission Date: 20150326
  Serious: Yes (Other)
  Sender: FDA-Public Use
  Company Number: PHHY2014US085376

PATIENT
  Age: 90 Year
  Sex: Female

DRUGS (3)
  1. METHOTREXATE [Suspect]
     Active Substance: METHOTREXATE
     Indication: PSORIASIS
     Dosage: 7.5-15 MG, WEEKLY
  2. METHOTREXATE [Interacting]
     Active Substance: METHOTREXATE
     Dosage: 12.5 MG, QW
  3. CIPROFLOXACIN. [Interacting]
     Active Substance: CIPROFLOXACIN
     Indication: PSEUDOMONAS INFECTION
     Dosage: 500 MG, BID

REACTIONS (13)
  - Nausea [Recovered/Resolved]
  - Oral pain [Recovered/Resolved]
  - Aspartate aminotransferase increased [Unknown]
  - Psoriasis [Recovered/Resolved]
  - Abdominal discomfort [Recovered/Resolved]
  - Mouth ulceration [Recovered/Resolved]
  - Platelet count decreased [Recovered/Resolved]
  - Alanine aminotransferase increased [Unknown]
  - Vomiting [Recovered/Resolved]
  - Blood creatinine increased [Recovered/Resolved]
  - Lip ulceration [Recovered/Resolved]
  - Toxicity to various agents [Recovered/Resolved]
  - Drug interaction [Unknown]
